FAERS Safety Report 24893999 (Version 2)
Quarter: 2025Q1

REPORT INFORMATION
  Report Type: Report from Study
  Country: US (occurrence: US)
  Receive Date: 20250128
  Receipt Date: 20250319
  Transmission Date: 20250408
  Serious: No
  Sender: ACADIA PHARMACEUTICALS
  Company Number: US-ACADIA PHARMACEUTICALS INC.-ACA-2025-PIM-000458

PATIENT
  Sex: Female

DRUGS (6)
  1. NUPLAZID [Suspect]
     Active Substance: PIMAVANSERIN TARTRATE
     Indication: Parkinson^s disease
     Dosage: 34 MILLIGRAM, QD
     Route: 048
     Dates: start: 20220817
  2. CEPHALEXIN [Concomitant]
     Active Substance: CEPHALEXIN
  3. GABAPENTIN [Concomitant]
     Active Substance: GABAPENTIN
  4. GOCOVRI [Concomitant]
     Active Substance: AMANTADINE
  5. QUETIAPINE [Concomitant]
     Active Substance: QUETIAPINE
  6. ROPINIROLE [Concomitant]
     Active Substance: ROPINIROLE

REACTIONS (4)
  - Dry mouth [Unknown]
  - Insomnia [Unknown]
  - Balance disorder [Not Recovered/Not Resolved]
  - Condition aggravated [Not Recovered/Not Resolved]
